FAERS Safety Report 13026391 (Version 1)
Quarter: 2016Q4

REPORT INFORMATION
  Report Type: Spontaneous
  Country: US (occurrence: US)
  Receive Date: 20161214
  Receipt Date: 20161214
  Transmission Date: 20170207
  Serious: No
  Sender: FDA-Public Use
  Company Number: US-APOTEX-2016AP014528

PATIENT
  Sex: Female

DRUGS (1)
  1. FENTANYL TRANSDERMAL SYSTEM [Suspect]
     Active Substance: FENTANYL
     Indication: PRODUCT USED FOR UNKNOWN INDICATION
     Dosage: 75 ?G, ONE EVERY 48 HOURS
     Route: 062

REACTIONS (8)
  - Product measured potency issue [Unknown]
  - Hyperhidrosis [Unknown]
  - Eating disorder [Unknown]
  - Product substitution issue [Unknown]
  - Depression [Unknown]
  - Anxiety [Unknown]
  - Chills [Unknown]
  - Tremor [Unknown]
